FAERS Safety Report 7395554-X (Version None)
Quarter: 2011Q2

REPORT INFORMATION
  Report Type: 
  Country: None (occurrence: None)
  Receive Date: 20110405
  Receipt Date: 20110323
  Transmission Date: 20111010
  Serious: Yes (Disabling)
  Sender: FDA-Public Use
  Company Number: PHHY2011BE24189

PATIENT
  Age: 53 Year
  Sex: Male

DRUGS (2)
  1. CERTICAN [Suspect]
  2. CYCLOSPORINE [Concomitant]

REACTIONS (2)
  - BLINDNESS [None]
  - MACULAR DEGENERATION [None]
